FAERS Safety Report 16571813 (Version 10)
Quarter: 2021Q1

REPORT INFORMATION
  Report Type: Spontaneous
  Country: US (occurrence: US)
  Receive Date: 20190715
  Receipt Date: 20210303
  Transmission Date: 20210419
  Serious: Yes (Hospitalization)
  Sender: FDA-Public Use
  Company Number: US-PFIZER INC-2019300356

PATIENT
  Age: 65 Year
  Sex: Male
  Weight: 122.45 kg

DRUGS (1)
  1. LYRICA [Suspect]
     Active Substance: PREGABALIN
     Indication: NEUROPATHY PERIPHERAL
     Dosage: 300 MG, BID (2X/DAY)

REACTIONS (6)
  - Hypoacusis [Not Recovered/Not Resolved]
  - Pruritus [Unknown]
  - Formication [Unknown]
  - Restlessness [Unknown]
  - Burning sensation [Unknown]
  - Drug withdrawal syndrome [Unknown]

NARRATIVE: CASE EVENT DATE: 2016
